FAERS Safety Report 11433131 (Version 1)
Quarter: 2015Q3

REPORT INFORMATION
  Report Type: Spontaneous
  Country: None (occurrence: None)
  Receive Date: 20150826
  Receipt Date: 20150826
  Transmission Date: 20151125
  Serious: Yes (Hospitalization)
  Sender: FDA-Public Use
  Company Number: 1713747-2015-999269

PATIENT
  Age: 83 Year
  Sex: Female

DRUGS (13)
  1. FUROSEMIDE. [Concomitant]
     Active Substance: FUROSEMIDE
  2. LOSARTAN. [Concomitant]
     Active Substance: LOSARTAN
  3. LIBERTY CYCLER CASSETTE [Concomitant]
     Active Substance: DEVICE
  4. CARVEDILOL. [Concomitant]
     Active Substance: CARVEDILOL
  5. LIBERTY CYCLER [Concomitant]
     Active Substance: DEVICE
  6. SODIUM BICARBONATE. [Concomitant]
     Active Substance: SODIUM BICARBONATE
  7. TRAMADOL. [Concomitant]
     Active Substance: TRAMADOL
  8. WARFARIN [Concomitant]
     Active Substance: WARFARIN
  9. MULTIVITAMIN [Concomitant]
     Active Substance: VITAMINS
  10. DELFLEX [Suspect]
     Active Substance: CALCIUM CHLORIDE\DEXTROSE MONOHYDRATE\MAGNESIUM CHLORIDE\SODIUM CHLORIDE\SODIUM LACTATE
     Indication: PERITONEAL DIALYSIS
     Route: 033
  11. CLONIDINE. [Concomitant]
     Active Substance: CLONIDINE
  12. DILTIAZEM [Concomitant]
     Active Substance: DILTIAZEM
  13. GLIPIZIDE. [Concomitant]
     Active Substance: GLIPIZIDE

REACTIONS (2)
  - Blood electrolytes abnormal [None]
  - Ileus [None]

NARRATIVE: CASE EVENT DATE: 20150706
